FAERS Safety Report 9512811 (Version 1)
Quarter: 2013Q3

REPORT INFORMATION
  Report Type: Spontaneous
  Country: US (occurrence: US)
  Receive Date: 20130910
  Receipt Date: 20130910
  Transmission Date: 20140515
  Serious: No
  Sender: FDA-Public Use
  Company Number: US-BAYER-2013-109170

PATIENT
  Age: 60 Year
  Sex: Female
  Weight: 82 kg

DRUGS (1)
  1. ALEVE TABLET [Suspect]
     Indication: BACK PAIN
     Dosage: 2 UNK, PRN
     Route: 048
     Dates: start: 201307

REACTIONS (1)
  - Dyspepsia [Recovered/Resolved]
